FAERS Safety Report 4416274-7 (Version None)
Quarter: 2004Q3

REPORT INFORMATION
  Report Type: 
  Country: None (occurrence: None)
  Receive Date: 20040803
  Receipt Date: 20040721
  Transmission Date: 20050211
  Serious: Yes (Other)
  Sender: FDA-Public Use
  Company Number: US-JNJFOC-20040706145

PATIENT
  Age: 59 Year
  Sex: Female

DRUGS (7)
  1. IMODIUM A-D [Suspect]
     Indication: DIARRHOEA
     Dosage: (3 DOSES TOTAL)
     Dates: start: 20040701, end: 20040716
  2. PREDNISONE [Concomitant]
  3. CELLCEPT [Concomitant]
  4. PLAQUENIL [Concomitant]
  5. VERAPAMIL [Concomitant]
  6. SYNTHROID [Concomitant]
  7. NEXIUM [Concomitant]

REACTIONS (6)
  - CONDITION AGGRAVATED [None]
  - DEHYDRATION [None]
  - DIARRHOEA [None]
  - MEDICATION ERROR [None]
  - PHARMACEUTICAL PRODUCT COMPLAINT [None]
  - VOMITING [None]
